FAERS Safety Report 6239439-0 (Version None)
Quarter: 2009Q2

REPORT INFORMATION
  Report Type: 
  Country: None (occurrence: None)
  Receive Date: 20090618
  Receipt Date: 20090618
  Transmission Date: 20091009
  Serious: No
  Sender: FDA-Public Use
  Company Number: None

PATIENT
  Age: 57 Year
  Sex: Male
  Weight: 74.8435 kg

DRUGS (1)
  1. ZICAM ORAL TABLETS [Suspect]
     Indication: NASOPHARYNGITIS
     Dosage: 1 TABLET Q 8 H PO
     Route: 048
     Dates: start: 20030213, end: 20030216

REACTIONS (1)
  - ANOSMIA [None]
